FAERS Safety Report 21408478 (Version 1)
Quarter: 2022Q4

REPORT INFORMATION
  Report Type: Spontaneous
  Country: DE (occurrence: DE)
  Receive Date: 20221004
  Receipt Date: 20221004
  Transmission Date: 20230113
  Serious: Yes (Other)
  Sender: FDA-Public Use
  Company Number: DE-SA-SAC20220805000656

PATIENT
  Age: 67 Year
  Sex: Female
  Weight: 66 kg

DRUGS (2)
  1. DUPIXENT [Suspect]
     Active Substance: DUPILUMAB
     Dosage: UNK, 1 X 100 MG
     Route: 030
  2. DUPILUMAB [Concomitant]
     Active Substance: DUPILUMAB
     Dosage: UNK, 1 X 200 MG
     Route: 030
     Dates: start: 20220722

REACTIONS (20)
  - Arrhythmia [Unknown]
  - Pyrexia [Unknown]
  - Swelling [Unknown]
  - Diarrhoea [Unknown]
  - Myalgia [Unknown]
  - Dyspnoea [Unknown]
  - Panic reaction [Unknown]
  - Tachycardia [Unknown]
  - Dizziness [Unknown]
  - Respiratory disorder [Unknown]
  - Asthma [Unknown]
  - Anxiety [Unknown]
  - Pustule [Unknown]
  - Pruritus [Unknown]
  - Papule [Unknown]
  - Erythema [Unknown]
  - Urticaria [Unknown]
  - Arthralgia [Unknown]
  - Rash [Unknown]
  - Incorrect route of product administration [Unknown]
